FAERS Safety Report 11449543 (Version 2)
Quarter: 2015Q4

REPORT INFORMATION
  Report Type: Spontaneous
  Country: US (occurrence: US)
  Receive Date: 20150903
  Receipt Date: 20151016
  Transmission Date: 20160304
  Serious: Yes (Hospitalization)
  Sender: FDA-Public Use
  Company Number: US-ASTRAZENECA-2015SE84339

PATIENT
  Age: 86 Year
  Sex: Female
  Weight: 53.5 kg

DRUGS (7)
  1. BRILINTA [Suspect]
     Active Substance: TICAGRELOR
     Indication: ANTICOAGULANT THERAPY
     Route: 048
     Dates: start: 20150324, end: 20150909
  2. METOPROLOL [Concomitant]
     Active Substance: METOPROLOL
     Dosage: EVERY DAY
     Dates: start: 20150324
  3. NEXIUM 24HR [Suspect]
     Active Substance: ESOMEPRAZOLE MAGNESIUM
     Indication: ABDOMINAL DISCOMFORT
     Route: 048
     Dates: start: 20150324, end: 20150909
  4. VITAMIN D [Concomitant]
     Active Substance: CHOLECALCIFEROL
     Indication: FAECES HARD
     Dates: start: 20150324, end: 20150909
  5. NEXIUM 24HR [Suspect]
     Active Substance: ESOMEPRAZOLE MAGNESIUM
     Indication: PROPHYLAXIS
     Route: 048
     Dates: start: 20150324, end: 20150909
  6. VITAMIN D [Concomitant]
     Active Substance: CHOLECALCIFEROL
     Indication: SUPPLEMENTATION THERAPY
     Dates: start: 20150324, end: 20150909
  7. BABY ASPIRIN [Suspect]
     Active Substance: ASPIRIN
     Route: 065
     Dates: start: 20150324, end: 20150909

REACTIONS (7)
  - Nausea [Recovered/Resolved]
  - Off label use [Unknown]
  - Malaise [Recovered/Resolved]
  - Abdominal pain upper [Recovered/Resolved]
  - Abdominal discomfort [Recovered/Resolved]
  - Decreased appetite [Recovered/Resolved]
  - Product use issue [Recovered/Resolved]

NARRATIVE: CASE EVENT DATE: 2015
